FAERS Safety Report 19048202 (Version 1)
Quarter: 2021Q1

REPORT INFORMATION
  Report Type: Spontaneous
  Country: US (occurrence: US)
  Receive Date: 20210324
  Receipt Date: 20210324
  Transmission Date: 20210420
  Serious: Yes (Other)
  Sender: FDA-Public Use
  Company Number: US-AUROBINDO-AUR-APL-2021-010399

PATIENT
  Age: 65 Year
  Sex: Female

DRUGS (4)
  1. CALTRATE [Concomitant]
     Active Substance: CALCIUM CARBONATE
     Indication: PRODUCT USED FOR UNKNOWN INDICATION
     Dosage: UNK
     Route: 048
  2. ATORVASTATIN [Concomitant]
     Active Substance: ATORVASTATIN
     Indication: PRODUCT USED FOR UNKNOWN INDICATION
     Dosage: 20 MILLIGRAM, ONCE A DAY
     Route: 048
  3. ALENDRONATE SODIUM TABLETS USP 70MG [Suspect]
     Active Substance: ALENDRONATE SODIUM
     Indication: OSTEOPOROSIS
     Dosage: 1 DOSAGE FORM, EVERY WEEK
     Route: 048
     Dates: start: 20200311, end: 20200311
  4. VITAMIN D [Concomitant]
     Active Substance: VITAMIN D NOS
     Indication: PRODUCT USED FOR UNKNOWN INDICATION
     Dosage: 1000 MILLIGRAM, ONCE A DAY
     Route: 048

REACTIONS (20)
  - Oropharyngeal pain [Unknown]
  - Sensation of foreign body [Unknown]
  - Chills [Unknown]
  - Hiatus hernia [Unknown]
  - Pulmonary mass [Unknown]
  - Pyrexia [Unknown]
  - Blister [Unknown]
  - Renal impairment [Unknown]
  - Dysgeusia [Recovered/Resolved]
  - Barrett^s oesophagus [Unknown]
  - Decreased appetite [Unknown]
  - Bone pain [Unknown]
  - Taste disorder [Unknown]
  - Gastrooesophageal reflux disease [Unknown]
  - Scar [Unknown]
  - Paraesthesia [Unknown]
  - Fatigue [Unknown]
  - Regurgitation [Unknown]
  - Blood phosphorus abnormal [Unknown]
  - Dysphonia [Unknown]

NARRATIVE: CASE EVENT DATE: 20200311
